FAERS Safety Report 19031213 (Version 1)
Quarter: 2021Q1

REPORT INFORMATION
  Report Type: Spontaneous
  Country: US (occurrence: US)
  Receive Date: 20210319
  Receipt Date: 20210319
  Transmission Date: 20210420
  Serious: Yes (Life-Threatening, Hospitalization, Other)
  Sender: FDA-Public Use
  Company Number: None

PATIENT
  Age: 79 Year
  Sex: Female
  Weight: 49.9 kg

DRUGS (9)
  1. SINGULAIR [Concomitant]
     Active Substance: MONTELUKAST SODIUM
  2. PREDNISILONE [Concomitant]
  3. KETAMINE [Concomitant]
     Active Substance: KETAMINE
  4. PREDNISONE. [Concomitant]
     Active Substance: PREDNISONE
  5. NUCALA [Concomitant]
     Active Substance: MEPOLIZUMAB
  6. DONZEPRIL [Concomitant]
  7. DUPIXENT [Suspect]
     Active Substance: DUPILUMAB
     Indication: ASTHMA
     Dosage: ?          QUANTITY:1 DF DOSAGE FORM;  2 SHOTS?
     Dates: start: 202102, end: 202102
  8. BUDESONIDE. [Concomitant]
     Active Substance: BUDESONIDE
  9. ALBUTEROL. [Concomitant]
     Active Substance: ALBUTEROL

REACTIONS (2)
  - Choking [None]
  - Respiratory disorder [None]

NARRATIVE: CASE EVENT DATE: 202102
